FAERS Safety Report 8546102-X (Version None)
Quarter: 2012Q3

REPORT INFORMATION
  Report Type: 
  Country: None (occurrence: None)
  Receive Date: 20120727
  Receipt Date: 20111208
  Transmission Date: 20120928
  Serious: No
  Sender: FDA-Public Use
  Company Number: US-ASTRAZENECA-2011SE74545

PATIENT
  Age: 17 Year
  Sex: Female
  Weight: 53.5 kg

DRUGS (5)
  1. SEROQUEL [Suspect]
     Indication: INSOMNIA
     Route: 048
     Dates: start: 20100101
  2. LEXAPRO [Concomitant]
     Indication: DEPRESSION
  3. SEROQUEL [Suspect]
     Indication: ANXIETY
     Route: 048
     Dates: start: 20100101
  4. SEROQUEL [Suspect]
     Indication: DEPRESSION
     Route: 048
     Dates: start: 20100101
  5. LEXAPRO [Concomitant]
     Indication: ANXIETY

REACTIONS (7)
  - HEADACHE [None]
  - SOMNAMBULISM [None]
  - OFF LABEL USE [None]
  - ADVERSE DRUG REACTION [None]
  - SLEEP-RELATED EATING DISORDER [None]
  - DRUG DOSE OMISSION [None]
  - NAUSEA [None]
